FAERS Safety Report 6919777-6 (Version None)
Quarter: 2010Q3

REPORT INFORMATION
  Report Type: 
  Country: None (occurrence: None)
  Receive Date: 20100811
  Receipt Date: 20100729
  Transmission Date: 20110219
  Serious: No
  Sender: FDA-Public Use
  Company Number: US-B.I. PHARMACEUTICALS,INC./RIDGEFIELD-2010-BP-07709BP

PATIENT
  Age: 89 Year
  Sex: Female

DRUGS (12)
  1. MICARDIS [Suspect]
     Indication: HYPERTENSION
     Route: 048
     Dates: start: 20100101
  2. MICARDIS [Suspect]
     Indication: BLOOD PRESSURE INADEQUATELY CONTROLLED
  3. OTHER HTN MEDICATIONS [Concomitant]
     Indication: HYPERTENSION
  4. PREMARIN [Concomitant]
  5. ATENOLOL [Concomitant]
  6. VALIUM [Concomitant]
  7. SYNTHROID [Concomitant]
  8. CELEXA [Concomitant]
  9. TOFRANIL [Concomitant]
  10. IMIPRAMINE [Concomitant]
     Dosage: 5 MG
  11. OXYTROL [Concomitant]
  12. DIAZEPAM [Concomitant]

REACTIONS (2)
  - BLOOD CHOLESTEROL ABNORMAL [None]
  - BLOOD PRESSURE INADEQUATELY CONTROLLED [None]
